FAERS Safety Report 12362385 (Version 1)
Quarter: 2016Q2

REPORT INFORMATION
  Report Type: Spontaneous
  Country: KR (occurrence: KR)
  Receive Date: 20160512
  Receipt Date: 20160512
  Transmission Date: 20160815
  Serious: Yes (Hospitalization)
  Sender: FDA-Public Use
  Company Number: KR-BAYER-2016-085299

PATIENT
  Age: 59 Year
  Sex: Male

DRUGS (4)
  1. ASPIRIN PROTECT [Suspect]
     Active Substance: ASPIRIN
     Dosage: 100 MG, UNK
     Route: 048
  2. DILTIAZEM [Concomitant]
     Active Substance: DILTIAZEM
  3. CLOPIDOGREL [Concomitant]
     Active Substance: CLOPIDOGREL BISULFATE
     Dosage: 75 MG, UNK
     Route: 048
  4. ASPIRIN PROTECT [Suspect]
     Active Substance: ASPIRIN
     Dosage: UNK

REACTIONS (10)
  - Ventricular tachycardia [Recovered/Resolved]
  - Dizziness [Recovered/Resolved]
  - Pulse absent [Recovered/Resolved]
  - Ventricular fibrillation [Recovered/Resolved]
  - Chest pain [Recovered/Resolved]
  - Coronary artery stenosis [Recovered/Resolved]
  - Gastric mucosal lesion [Recovered/Resolved]
  - Anaemia [None]
  - Vascular stent thrombosis [Recovered/Resolved]
  - Haematochezia [Recovered/Resolved]
